FAERS Safety Report 10196751 (Version 1)
Quarter: 2014Q2

REPORT INFORMATION
  Report Type: Spontaneous
  Country: US (occurrence: US)
  Receive Date: 20140527
  Receipt Date: 20140527
  Transmission Date: 20141212
  Serious: No
  Sender: FDA-Public Use
  Company Number: US-009507513-1405USA013503

PATIENT
  Age: 28 Year
  Sex: Female

DRUGS (2)
  1. CELESTONE [Suspect]
     Dosage: 2 DOSES
     Route: 048
  2. AMPICILLIN [Concomitant]
     Dosage: THREE DOSES

REACTIONS (1)
  - Exposure during pregnancy [Recovered/Resolved]
